FAERS Safety Report 4946486-5 (Version None)
Quarter: 2006Q1

REPORT INFORMATION
  Report Type: 
  Country: None (occurrence: None)
  Receive Date: 20060313
  Receipt Date: 20060223
  Transmission Date: 20060701
  Serious: Yes (Hospitalization)
  Sender: FDA-Public Use
  Company Number: 7344

PATIENT
  Sex: Male

DRUGS (1)
  1. NITROQUICK  0.4 MG (ETHEX CORPORATION) [Suspect]
     Indication: ANGINA PECTORIS
     Dosage: PRN, CHEST PAIN
     Dates: start: 20060222

REACTIONS (2)
  - MYOCARDIAL INFARCTION [None]
  - WRONG TECHNIQUE IN DRUG USAGE PROCESS [None]
